FAERS Safety Report 13909972 (Version 2)
Quarter: 2019Q3

REPORT INFORMATION
  Report Type: Report from Study
  Country: US (occurrence: US)
  Receive Date: 20170828
  Receipt Date: 20190816
  Transmission Date: 20191004
  Serious: Yes (Other)
  Sender: FDA-Public Use
  Company Number: US-CIPLA LTD.-2017US14820

PATIENT

DRUGS (6)
  1. CARBOPLATIN. [Suspect]
     Active Substance: CARBOPLATIN
     Indication: NON-SMALL CELL LUNG CANCER
     Dosage: AUC 6, ON DAY 1 OF EVERY 21-DAY CYCLE
     Route: 042
  2. VITAMIN B12 [Concomitant]
     Active Substance: CYANOCOBALAMIN
     Indication: PROPHYLAXIS
     Dosage: 1000 MICROGRAM, EVERY 9 WEEKS
     Route: 030
  3. PEMETREXED. [Suspect]
     Active Substance: PEMETREXED
     Indication: NON-SMALL CELL LUNG CANCER
     Dosage: 500 MILLIGRAM/SQ. METER, ON DAY 1 OF EVERY 21-DAY CYCLE, GIVEN AS MAINTENANCE
     Route: 042
  4. DEXAMETHASONE. [Concomitant]
     Active Substance: DEXAMETHASONE
     Indication: PROPHYLAXIS
     Dosage: UNK
     Route: 065
  5. PANITUMUMAB [Suspect]
     Active Substance: PANITUMUMAB
     Indication: NON-SMALL CELL LUNG CANCER
     Dosage: 9 MILLIGRAM/KILOGRAM, ON DAY 1 OF EVERY 21-DAY CYCLE, GIVEN AS MAINTENANCE
     Route: 042
  6. FOLIC ACID. [Concomitant]
     Active Substance: FOLIC ACID
     Indication: PROPHYLAXIS
     Dosage: 1 MILLIGRAM, DAILY
     Route: 048

REACTIONS (12)
  - Dehydration [Unknown]
  - Malignant neoplasm progression [Unknown]
  - Anaemia [Unknown]
  - Hypokalaemia [Unknown]
  - Hypersensitivity [Unknown]
  - Diarrhoea [Unknown]
  - Thrombocytopenia [Unknown]
  - Nausea [Unknown]
  - Fatigue [Unknown]
  - Neutropenia [Unknown]
  - Leukopenia [Unknown]
  - Pruritus [Unknown]
